FAERS Safety Report 8887169 (Version 1)
Quarter: 2012Q4

REPORT INFORMATION
  Report Type: 
  Country: FR (occurrence: FR)
  Receive Date: 20121105
  Receipt Date: 20121105
  Transmission Date: 20130627
  Serious: Yes (Hospitalization)
  Sender: FDA-Public Use
  Company Number: FR-SANOFI-AVENTIS-2012SA080233

PATIENT
  Age: 25 Year
  Sex: Male
  Weight: 55 kg

DRUGS (20)
  1. ARAVA [Suspect]
     Indication: DRUG USE FOR UNKNOWN INDICATION
     Route: 048
  2. TAVANIC [Suspect]
     Indication: DYSPNEA
     Route: 048
     Dates: start: 20120621, end: 20120705
  3. NEBCINE [Suspect]
     Indication: PNEUMONIA
     Route: 042
     Dates: start: 20120710, end: 20120715
  4. CEFTAZIDIME [Suspect]
     Indication: PNEUMONIA
     Route: 042
     Dates: start: 20120710, end: 20120711
  5. GENTAMICIN [Suspect]
     Indication: DYSPNEA
     Route: 042
     Dates: start: 201207, end: 201207
  6. CERTICAN [Suspect]
     Indication: DRUG USE FOR UNKNOWN INDICATION
     Route: 048
  7. PROGRAF [Suspect]
     Indication: DRUG USE FOR UNKNOWN INDICATION
     Route: 048
  8. TRIATEC [Concomitant]
     Route: 048
  9. PENTACARINAT [Concomitant]
  10. CREON [Concomitant]
  11. HYDROCORTISONE [Concomitant]
     Route: 048
  12. ACTONEL [Concomitant]
     Route: 048
  13. CALTRATE [Concomitant]
     Route: 048
  14. NOVORAPID [Concomitant]
     Route: 048
  15. FERROUS SULFATE [Concomitant]
     Route: 048
  16. AZITHROMYCIN [Concomitant]
     Route: 048
  17. LANTUS [Concomitant]
     Route: 048
  18. VASTEN [Concomitant]
     Route: 048
  19. PAROXETINE [Concomitant]
     Route: 048
  20. VFEND [Concomitant]
     Route: 048

REACTIONS (1)
  - Renal failure acute [Recovered/Resolved]
